FAERS Safety Report 18671051 (Version 4)
Quarter: 2022Q2

REPORT INFORMATION
  Report Type: Spontaneous
  Country: US (occurrence: US)
  Receive Date: 20201228
  Receipt Date: 20220411
  Transmission Date: 20220721
  Serious: Yes (Other)
  Sender: FDA-Public Use
  Company Number: US-BIOGEN-2020BI00959911

PATIENT
  Age: 69 Year
  Sex: Male

DRUGS (3)
  1. VUMERITY [Suspect]
     Active Substance: DIROXIMEL FUMARATE
     Indication: Multiple sclerosis
     Route: 065
     Dates: start: 20210226
  2. DALFAMPRIDINE [Suspect]
     Active Substance: DALFAMPRIDINE
     Indication: Product used for unknown indication
     Route: 065
  3. DARIFENACIN [Concomitant]
     Active Substance: DARIFENACIN
     Indication: Prostatic disorder
     Route: 065

REACTIONS (5)
  - Carotid artery occlusion [Unknown]
  - Cognitive disorder [Not Recovered/Not Resolved]
  - Product dose omission in error [Recovered/Resolved]
  - Blood cholesterol increased [Not Recovered/Not Resolved]
  - Dementia [Not Recovered/Not Resolved]

NARRATIVE: CASE EVENT DATE: 20211101
